FAERS Safety Report 21699939 (Version 1)
Quarter: 2022Q4

REPORT INFORMATION
  Report Type: Spontaneous
  Country: CN (occurrence: CN)
  Receive Date: 20221208
  Receipt Date: 20221208
  Transmission Date: 20230113
  Serious: Yes (Other)
  Sender: FDA-Public Use
  Company Number: CN-Merck Healthcare KGaA-9369180

PATIENT
  Age: 36 Year
  Sex: Female
  Weight: 51 kg

DRUGS (2)
  1. ERBITUX [Suspect]
     Active Substance: CETUXIMAB
     Indication: Colon cancer metastatic
     Dosage: 0.7 G, UNKNOWN
     Route: 041
     Dates: start: 20221105, end: 20221105
  2. SODIUM CHLORIDE [Concomitant]
     Active Substance: SODIUM CHLORIDE
     Indication: Medication dilution
     Dosage: 250 MG, UNKNOWN
     Route: 041
     Dates: start: 20221105, end: 20221105

REACTIONS (5)
  - Eczema [Unknown]
  - Gingival bleeding [Unknown]
  - Gastrointestinal haemorrhage [Unknown]
  - International normalised ratio increased [Unknown]
  - Vomiting [Unknown]

NARRATIVE: CASE EVENT DATE: 20221108
